FAERS Safety Report 23437958 (Version 1)
Quarter: 2024Q1

REPORT INFORMATION
  Report Type: Spontaneous
  Country: US (occurrence: None)
  Receive Date: 20240123
  Receipt Date: 20240123
  Transmission Date: 20240410
  Serious: Yes (Hospitalization)
  Sender: FDA-Public Use
  Company Number: None

PATIENT
  Age: 77 Year
  Sex: Male

DRUGS (21)
  1. LENALIDOMIDE [Suspect]
     Active Substance: LENALIDOMIDE
     Indication: Plasma cell myeloma
     Dosage: 2.5 MG ORAL??TAKE 1 CAPSULE BY MOUTH DAILY
     Route: 048
     Dates: start: 20230906
  2. ACETAMIN TAB 500MG [Concomitant]
  3. ALBUTEROL AER HFA [Concomitant]
  4. ALLOPURINOL TAB 100MG [Concomitant]
  5. AMLODIPINE TAB 10MG [Concomitant]
  6. ASPIRIN LOW TAB 81MG EC [Concomitant]
  7. ATORVASTATIN TAB 40MG [Concomitant]
  8. AZELASTINE SPR 0.1% [Concomitant]
  9. BACTRUN TAB 400-800MG [Concomitant]
  10. BRIMONIDINE SOL 0.15% [Concomitant]
  11. CARVEDILOL TAB 25MG [Concomitant]
  12. CYCLOPHOSPHAMIDE [Concomitant]
     Active Substance: CYCLOPHOSPHAMIDE
  13. DOXAZOSIN TAB 4MG [Concomitant]
  14. FUROSEMIDE TAB 40MG [Concomitant]
  15. HYDRALAZINE TAB 50MG [Concomitant]
  16. LACTINEX GRA [Concomitant]
  17. LATANOPROST SOL 0.005% [Concomitant]
  18. PROCHLORPER TAB 10MG [Concomitant]
  19. REVLIMID 2.5MG CAP [Concomitant]
  20. TRIMETHOPRIM TAB 100MG [Concomitant]
  21. VALACYCLOVIR TAB 500MG [Concomitant]

REACTIONS (2)
  - Renal disorder [None]
  - Intentional dose omission [None]

NARRATIVE: CASE EVENT DATE: 20240116
